FAERS Safety Report 24944633 (Version 3)
Quarter: 2025Q3

REPORT INFORMATION
  Report Type: Report from Study
  Country: US (occurrence: US)
  Receive Date: 20250208
  Receipt Date: 20250930
  Transmission Date: 20251021
  Serious: Yes (Hospitalization, Other)
  Sender: ABBVIE
  Company Number: US-ABBVIE-6124494

PATIENT
  Sex: Male
  Weight: 94.8 kg

DRUGS (3)
  1. VENCLEXTA [Suspect]
     Active Substance: VENETOCLAX
     Indication: B-cell small lymphocytic lymphoma
     Dosage: FORM STRENGTH: 100 MG?4 TABLETS OF 100 MG ONCE DAILY
     Route: 048
     Dates: start: 20250204
  2. VENCLEXTA [Suspect]
     Active Substance: VENETOCLAX
     Indication: B-cell small lymphocytic lymphoma
     Dosage: 4 TABLETS OF 20 MG ONCE DAILY?FORM STRENGTH: 20 MG
     Route: 048
     Dates: start: 202404, end: 20241225
  3. FLAGYL [Concomitant]
     Active Substance: METRONIDAZOLE\METRONIDAZOLE HYDROCHLORIDE
     Indication: Diverticulitis

REACTIONS (6)
  - Diverticulitis [Unknown]
  - Blood iron decreased [Unknown]
  - Arthralgia [Unknown]
  - Arthritis [Unknown]
  - Meniere^s disease [Unknown]
  - Nausea [Recovering/Resolving]

NARRATIVE: CASE EVENT DATE: 20241225
